FAERS Safety Report 15726181 (Version 1)
Quarter: 2018Q4

REPORT INFORMATION
  Report Type: Spontaneous
  Country: US (occurrence: US)
  Receive Date: 20181216
  Receipt Date: 20181216
  Transmission Date: 20190205
  Serious: Yes (Hospitalization)
  Sender: FDA-Public Use
  Company Number: US-SUPERNUS PHARMACEUTICALS, INC.-2018SUP00249

PATIENT
  Age: 27 Year
  Sex: Male
  Weight: 79.37 kg

DRUGS (9)
  1. TROKENDI XR [Suspect]
     Active Substance: TOPIRAMATE
     Dosage: 200 MG, 1X/DAY
     Route: 048
     Dates: start: 201808
  2. TROKENDI XR [Suspect]
     Active Substance: TOPIRAMATE
     Indication: HEADACHE
     Dosage: 300 MG, 1X/DAY
     Route: 048
     Dates: start: 20180801, end: 201808
  3. TROKENDI XR [Suspect]
     Active Substance: TOPIRAMATE
     Indication: SEIZURE
     Dosage: 200 MG, 1X/DAY
     Route: 048
     Dates: start: 20171230, end: 20180731
  4. TROKENDI XR [Suspect]
     Active Substance: TOPIRAMATE
     Indication: SEIZURE
     Dosage: 25 MG, 1X/DAY
     Route: 048
     Dates: start: 201608, end: 201609
  5. TROKENDI XR [Suspect]
     Active Substance: TOPIRAMATE
     Indication: HEADACHE
  6. TROKENDI XR [Suspect]
     Active Substance: TOPIRAMATE
     Indication: HEADACHE
  7. TROKENDI XR [Suspect]
     Active Substance: TOPIRAMATE
     Indication: SEIZURE
     Dosage: 50 MG, 1X/DAY
     Route: 048
     Dates: start: 201609, end: 201609
  8. TROKENDI XR [Suspect]
     Active Substance: TOPIRAMATE
     Indication: SEIZURE
     Dosage: 100 MG, 1X/DAY
     Route: 048
     Dates: start: 201609, end: 201706
  9. TROKENDI XR [Suspect]
     Active Substance: TOPIRAMATE
     Indication: HEADACHE
     Dosage: 150 MG, 1X/DAY
     Route: 048
     Dates: start: 201706, end: 20171229

REACTIONS (7)
  - Memory impairment [Recovering/Resolving]
  - Drug ineffective [Not Recovered/Not Resolved]
  - Anger [Recovered/Resolved]
  - Feeling of relaxation [Unknown]
  - Seizure [Unknown]
  - Nasopharyngitis [Unknown]
  - Headache [Recovering/Resolving]

NARRATIVE: CASE EVENT DATE: 201609
